FAERS Safety Report 9247464 (Version 1)
Quarter: 2013Q2

REPORT INFORMATION
  Report Type: Spontaneous
  Country: US (occurrence: US)
  Receive Date: 20130423
  Receipt Date: 20130423
  Transmission Date: 20140414
  Serious: No
  Sender: FDA-Public Use
  Company Number: US-BRISTOL-MYERS SQUIBB COMPANY-17473497

PATIENT
  Sex: Male

DRUGS (1)
  1. METFORMIN HCL + GLIPIZIDE [Suspect]

REACTIONS (2)
  - Visual acuity reduced [Unknown]
  - Limb discomfort [Unknown]
